FAERS Safety Report 8606429-X (Version None)
Quarter: 2012Q3

REPORT INFORMATION
  Report Type: 
  Country: None (occurrence: None)
  Receive Date: 20120820
  Receipt Date: 20120807
  Transmission Date: 20120928
  Serious: Yes (Hospitalization, Other)
  Sender: FDA-Public Use
  Company Number: IT-COVIDIEN/TYCO HEALTHCARE/MALLINCKRODT-T201203032

PATIENT
  Age: 91 Year
  Sex: Female

DRUGS (10)
  1. NADROPARIN [Suspect]
     Indication: CEREBROVASCULAR ACCIDENT
     Dosage: 3800 UI/D
     Route: 058
  2. BUPRENORPHINE [Suspect]
     Indication: PAIN
     Dosage: 35 MCG/H
     Route: 062
  3. ASPIRIN [Concomitant]
     Indication: ANTICOAGULANT THERAPY
     Dosage: 100 MG QD
     Route: 048
  4. TRAMADOL HCL [Suspect]
     Dosage: WHEN REQUIRED
  5. ENALAPRIL MALEATE [Concomitant]
     Indication: HYPERTENSION
     Dosage: 20 MG QD
  6. ENALAPRIL MALEATE AND HYDROCHLOROTHIAZIDE [Concomitant]
     Indication: HYPERTENSION
     Dosage: 20 MG/12.5 MG QD
  7. LANSOPRAZOLE [Concomitant]
     Dosage: 30 MG
  8. LEVOFLOXACIN [Suspect]
     Indication: BACTERIAL INFECTION
     Dosage: 500 MG/D FOR 7 DAYS
     Route: 048
  9. METFORMINA GLIBENCLAMIDE SANDOZ [Suspect]
     Dosage: 400 MG/2.5 MG
     Route: 048
  10. INSULIN [Concomitant]

REACTIONS (2)
  - HYPOGLYCAEMIA [None]
  - DRUG INTERACTION [None]
